FAERS Safety Report 16173958 (Version 1)
Quarter: 2019Q2

REPORT INFORMATION
  Report Type: Report from Study
  Country: ES (occurrence: ES)
  Receive Date: 20190409
  Receipt Date: 20190409
  Transmission Date: 20190711
  Serious: Yes (Other)
  Sender: FDA-Public Use
  Company Number: ES-TEVA-2019-ES-1032529

PATIENT
  Sex: Female

DRUGS (1)
  1. COPAXONE [Suspect]
     Active Substance: GLATIRAMER ACETATE
     Indication: RELAPSING-REMITTING MULTIPLE SCLEROSIS
     Route: 058
     Dates: start: 20150721

REACTIONS (11)
  - Pyrexia [Recovering/Resolving]
  - Injection site haematoma [Recovering/Resolving]
  - Skin disorder [Recovering/Resolving]
  - Limb injury [Recovering/Resolving]
  - Hypersensitivity [Recovering/Resolving]
  - Injection site inflammation [Recovering/Resolving]
  - Pain in extremity [Recovering/Resolving]
  - Contusion [Recovering/Resolving]
  - Localised infection [Recovering/Resolving]
  - Inflammation [Not Recovered/Not Resolved]
  - Erythema [Recovering/Resolving]

NARRATIVE: CASE EVENT DATE: 2019
